FAERS Safety Report 5082635-9 (Version None)
Quarter: 2006Q3

REPORT INFORMATION
  Report Type: 
  Country: None (occurrence: None)
  Receive Date: 20060814
  Receipt Date: 20060802
  Transmission Date: 20061208
  Serious: Yes (Hospitalization, Disabling)
  Sender: FDA-Public Use
  Company Number: 224662

PATIENT
  Age: 54 Year
  Sex: Male

DRUGS (3)
  1. RAPTIVA [Suspect]
     Indication: PSORIASIS
     Dosage: 0.9 ML, 1/WEEK
     Dates: start: 20060101, end: 20060328
  2. ANGIOTENSIN II RECEPTOR ANTAGONISTS (ANGIOTENSIN II RECEPTOR ANTAGONIS [Concomitant]
  3. ASPIRIN [Concomitant]

REACTIONS (3)
  - DERMATITIS EXFOLIATIVE [None]
  - GENERALISED ERYTHEMA [None]
  - INFLAMMATION [None]
